FAERS Safety Report 4608876-X (Version None)
Quarter: 2005Q1

REPORT INFORMATION
  Report Type: 
  Country: None (occurrence: None)
  Receive Date: 20050315
  Receipt Date: 20041129
  Transmission Date: 20050727
  Serious: Yes (Death, Other)
  Sender: FDA-Public Use
  Company Number: ES-BRISTOL-MYERS SQUIBB COMPANY-12779294

PATIENT
  Sex: Female

DRUGS (9)
  1. TAXOL [Suspect]
     Indication: BREAST CANCER METASTATIC
     Route: 042
     Dates: start: 20040702, end: 20040709
  2. DOCETAXEL [Suspect]
  3. ONDANSETRON [Concomitant]
     Indication: PREMEDICATION
     Dosage: 30 MINUTES PRIOR TO PACLITAXEL
     Route: 042
     Dates: start: 20040702, end: 20040709
  4. DEXAMETHASONE [Concomitant]
     Indication: PREMEDICATION
     Dosage: 30 MINUTES PRIOR TO PACLITAXEL
     Route: 042
     Dates: start: 20040702, end: 20040709
  5. DEXCHLORPHENIRAMINE [Concomitant]
     Indication: PREMEDICATION
     Dosage: 30 MINUTES PRIOR TO PACLITAXEL
     Route: 042
     Dates: start: 20040702, end: 20040709
  6. RANITIDINE [Concomitant]
     Indication: PREMEDICATION
     Dosage: IN 100 ML OF SALINE SERUM
     Route: 042
     Dates: start: 20040702, end: 20040709
  7. METOCLOPRAMIDE [Concomitant]
  8. SUCRALFATE [Concomitant]
     Dosage: 1 SACHET BEFORE LUNCH
  9. MEGESTROL ACETATE [Concomitant]

REACTIONS (8)
  - ANOREXIA [None]
  - ASTHENIA [None]
  - CARDIAC TAMPONADE [None]
  - DIARRHOEA [None]
  - MUSCULOSKELETAL DISORDER [None]
  - MUSCULOSKELETAL PAIN [None]
  - NEUROTOXICITY [None]
  - NEUTROPENIA [None]
